FAERS Safety Report 7939138-0 (Version None)
Quarter: 2011Q4

REPORT INFORMATION
  Report Type: 
  Country: None (occurrence: None)
  Receive Date: 20111124
  Receipt Date: 20111018
  Transmission Date: 20120403
  Serious: Yes (Other)
  Sender: FDA-Public Use
  Company Number: US-ROCHE-1014240

PATIENT
  Sex: Female
  Weight: 78.9 kg

DRUGS (4)
  1. PEGINTERFERON ALFA-2A [Suspect]
     Indication: HEPATITIS B
     Route: 058
     Dates: start: 20110804
  2. ACETAMINOPHEN [Concomitant]
     Route: 065
  3. VITAMIN D [Concomitant]
     Route: 065
     Dates: start: 20110906
  4. TENOFOVIR [Suspect]
     Indication: HEPATITIS B
     Route: 048
     Dates: start: 20110804

REACTIONS (1)
  - HEPATITIS [None]
